FAERS Safety Report 14237318 (Version 1)
Quarter: 2017Q4

REPORT INFORMATION
  Report Type: Spontaneous
  Country: US (occurrence: US)
  Receive Date: 20171129
  Receipt Date: 20171129
  Transmission Date: 20180321
  Serious: Yes (Other)
  Sender: FDA-Public Use
  Company Number: US-PURDUE-USA-2017-0140574

PATIENT
  Sex: Female

DRUGS (1)
  1. HYSINGLA ER [Suspect]
     Active Substance: HYDROCODONE BITARTRATE
     Indication: NEURALGIA
     Dosage: 30 MG, Q24H
     Route: 048

REACTIONS (7)
  - Feeling abnormal [Recovered/Resolved]
  - Insomnia [Recovered/Resolved]
  - Intentional dose omission [Recovered/Resolved]
  - Restlessness [Recovered/Resolved]
  - Inadequate analgesia [Not Recovered/Not Resolved]
  - Malaise [Recovered/Resolved]
  - Drug dependence [Not Recovered/Not Resolved]
